FAERS Safety Report 8707261 (Version 2)
Quarter: 2013Q4

REPORT INFORMATION
  Report Type: Spontaneous
  Country: US (occurrence: US)
  Receive Date: 20120803
  Receipt Date: 20131105
  Transmission Date: 20140711
  Serious: Yes (Hospitalization)
  Sender: FDA-Public Use
  Company Number: US-009507513-1207USA011287

PATIENT
  Age: 61 Year
  Sex: Male

DRUGS (2)
  1. ZOCOR [Suspect]
     Dosage: 40 MG, HS
     Route: 048
  2. DIAZEPAM [Suspect]
     Dosage: 2 MG, UNK
     Route: 048

REACTIONS (3)
  - Somnolence [Unknown]
  - Hepatocellular injury [Unknown]
  - Hepatic enzyme increased [Unknown]
